FAERS Safety Report 21994917 (Version 3)
Quarter: 2023Q2

REPORT INFORMATION
  Report Type: Report from Study
  Country: US (occurrence: None)
  Receive Date: 20230215
  Receipt Date: 20230414
  Transmission Date: 20230721
  Serious: Yes (Hospitalization)
  Sender: FDA-Public Use
  Company Number: US-Merck Healthcare KGaA-9382834

PATIENT
  Sex: Female

DRUGS (2)
  1. MAVENCLAD [Suspect]
     Active Substance: CLADRIBINE
     Indication: Multiple sclerosis
     Dosage: YEAR ONE MONTH ONE THERAPY: 20 MG ON DAYS 1 TO 2 AND 10 MG ON DAYS 3 TO 5
     Route: 048
     Dates: start: 20210419, end: 20210423
  2. MAVENCLAD [Suspect]
     Active Substance: CLADRIBINE
     Dosage: YEAR ONE MONTH TWO THERAPY: 20 MG ON DAYS 1 TO 2 AND 10 MG ON DAYS 3 TO 5
     Route: 048
     Dates: start: 202105, end: 20210523

REACTIONS (8)
  - White blood cell count decreased [Unknown]
  - COVID-19 [Unknown]
  - Encephalopathy [Unknown]
  - Pneumonia [Unknown]
  - Anaemia [Unknown]
  - Multiple sclerosis relapse [Unknown]
  - Hypoaesthesia [Unknown]
  - Paraesthesia [Unknown]
